FAERS Safety Report 8806659 (Version 1)
Quarter: 2012Q4

REPORT INFORMATION
  Report Type: Spontaneous
  Country: IT (occurrence: None)
  Receive Date: 20120919
  Receipt Date: 20120919
  Transmission Date: 20130627
  Serious: Yes (Death, Hospitalization)
  Sender: FDA-Public Use
  Company Number: SP06068

PATIENT
  Age: 73 Year
  Sex: Male

DRUGS (1)
  1. XIFAXAN [Suspect]
     Indication: DIARRHEA
     Route: 048
     Dates: start: 20120720, end: 20120725

REACTIONS (10)
  - Hepatitis cholestatic [None]
  - Hepatitis B virus test positive [None]
  - Rash [None]
  - Pruritus [None]
  - Hypotension [None]
  - Renal failure [None]
  - Liver disorder [None]
  - Dialysis [None]
  - Vanishing bile duct syndrome [None]
  - Hepatic failure [None]
